FAERS Safety Report 6274880-1 (Version None)
Quarter: 2009Q3

REPORT INFORMATION
  Report Type: 
  Country: None (occurrence: None)
  Receive Date: 20090721
  Receipt Date: 20080411
  Transmission Date: 20100115
  Serious: Yes (Other)
  Sender: FDA-Public Use
  Company Number: US-ASTRAZENECA-2007UW14336

PATIENT
  Age: 40 Year
  Sex: Female
  Weight: 102.1 kg

DRUGS (27)
  1. SEROQUEL [Suspect]
     Indication: SCHIZOPHRENIA
     Dosage: 100MG IN AM, 600MG IN PM
     Route: 048
     Dates: start: 19980801, end: 20020101
  2. SEROQUEL [Suspect]
     Indication: DEPRESSION
     Dosage: 100MG IN AM, 600MG IN PM
     Route: 048
     Dates: start: 19980801, end: 20020101
  3. SEROQUEL [Suspect]
     Route: 048
     Dates: start: 20020101, end: 20040101
  4. SEROQUEL [Suspect]
     Route: 048
     Dates: start: 20020101, end: 20040101
  5. SEROQUEL [Suspect]
     Dosage: 300-900 MG
     Route: 048
     Dates: start: 20030124
  6. SEROQUEL [Suspect]
     Dosage: 300-900 MG
     Route: 048
     Dates: start: 20030124
  7. SEROQUEL [Suspect]
     Dosage: 150MG IN AM AND 600MG IN PM
     Route: 048
     Dates: start: 20040101, end: 20060517
  8. SEROQUEL [Suspect]
     Dosage: 150MG IN AM AND 600MG IN PM
     Route: 048
     Dates: start: 20040101, end: 20060517
  9. ZYPREXA [Suspect]
     Dates: start: 20040429, end: 20040908
  10. RISPERDAL [Suspect]
     Indication: DEPRESSION
  11. RISPERDAL [Suspect]
     Indication: SCHIZOPHRENIA
  12. VIOXX [Concomitant]
     Dosage: 12.5-50 MG
     Route: 048
  13. ZOCOR [Concomitant]
     Dosage: 20-40 MG
     Route: 048
  14. SYNTHROID [Concomitant]
     Dosage: 0.05-0.075 MG
     Route: 048
  15. LOTREL [Concomitant]
     Dosage: 5-10/20
     Route: 048
  16. EFFEXOR [Concomitant]
     Dosage: 37.5-75 MG
     Route: 048
  17. DIOVAN [Concomitant]
     Route: 048
  18. TENORMIN [Concomitant]
     Indication: BLOOD PRESSURE
     Route: 048
  19. LORCET-HD [Concomitant]
     Indication: PAIN
     Dosage: 7.5-15 MG
     Route: 048
  20. REMERON [Concomitant]
     Route: 048
  21. VASOTEC [Concomitant]
     Route: 048
  22. GLUCOPHAGE [Concomitant]
     Route: 048
  23. ZANTAC [Concomitant]
     Indication: GASTROOESOPHAGEAL REFLUX DISEASE
     Dosage: 150-300 MG
  24. XANAX [Concomitant]
     Indication: ANXIETY
     Dosage: 0.5-1 MG
     Route: 048
  25. THORAZINE [Concomitant]
     Dates: start: 20060901, end: 20080501
  26. HALDOL [Concomitant]
     Dates: start: 20010101
  27. GEODON [Concomitant]
     Dates: start: 20070901, end: 20080501

REACTIONS (11)
  - CARDIAC DISORDER [None]
  - DIABETES MELLITUS [None]
  - GASTROOESOPHAGEAL REFLUX DISEASE [None]
  - HALLUCINATION [None]
  - LOSS OF CONSCIOUSNESS [None]
  - NEUROPATHY PERIPHERAL [None]
  - PERIPHERAL SENSORIMOTOR NEUROPATHY [None]
  - SOMNOLENCE [None]
  - TARDIVE DYSKINESIA [None]
  - THYROID DISORDER [None]
  - TYPE 2 DIABETES MELLITUS [None]
